FAERS Safety Report 9495458 (Version 3)
Quarter: 2013Q4

REPORT INFORMATION
  Report Type: Report from Study
  Country: US (occurrence: US)
  Receive Date: 20130903
  Receipt Date: 20131028
  Transmission Date: 20140711
  Serious: Yes (Hospitalization)
  Sender: FDA-Public Use
  Company Number: US-JNJFOC-20130816082

PATIENT
  Sex: Male

DRUGS (2)
  1. REMICADE [Suspect]
     Indication: RHEUMATOID ARTHRITIS
     Route: 042
  2. REMICADE [Suspect]
     Indication: RHEUMATOID ARTHRITIS
     Dosage: 2 WEEKS AFTER BIT BY TICK
     Route: 042

REACTIONS (3)
  - Malaise [Recovered/Resolved]
  - Arthropod bite [Recovered/Resolved]
  - Pain in extremity [Recovering/Resolving]
